FAERS Safety Report 15215187 (Version 2)
Quarter: 2018Q3

REPORT INFORMATION
  Report Type: Spontaneous
  Country: TR (occurrence: TR)
  Receive Date: 20180730
  Receipt Date: 20180802
  Transmission Date: 20181010
  Serious: Yes (Death, Life-Threatening)
  Sender: FDA-Public Use
  Company Number: TR-PFIZER INC-2018301693

PATIENT
  Age: 47 Year
  Sex: Male

DRUGS (10)
  1. IMIPENEM [Concomitant]
     Active Substance: IMIPENEM
     Indication: FEBRILE NEUTROPENIA
     Dosage: 500 MG, 4X/DAY
     Route: 042
  2. IDARUBICIN [Concomitant]
     Active Substance: IDARUBICIN
     Indication: CHEMOTHERAPY
     Dosage: UNK
  3. AMPHOTERICIN B DEOXYCHOLATE [Suspect]
     Active Substance: AMPHOTERICIN B
     Indication: TRICHOSPORON INFECTION
     Dosage: 5 MG/KG, DAILY
     Route: 042
  4. VORICONAZOLE. [Suspect]
     Active Substance: VORICONAZOLE
     Dosage: 400 MG, 2X/DAY(Q12H)
     Route: 042
  5. CASPOFUNGIN [Suspect]
     Active Substance: CASPOFUNGIN
     Indication: TRICHOSPORON INFECTION
     Dosage: 70 MG, 1X/DAY (ONCE)
     Route: 042
  6. VORICONAZOLE. [Suspect]
     Active Substance: VORICONAZOLE
     Indication: TRICHOSPORON INFECTION
     Dosage: 600 MG, 2X/DAY (Q12H THE FIRST DAY)
     Route: 042
  7. CASPOFUNGIN [Suspect]
     Active Substance: CASPOFUNGIN
     Dosage: 50 MG, 1X/DAY (Q24H)
     Route: 042
  8. CYTOSINE ARABINOSIDE [Concomitant]
     Active Substance: CYTARABINE
     Indication: CHEMOTHERAPY
     Dosage: UNK
  9. NEUPOGEN [Concomitant]
     Active Substance: FILGRASTIM
     Indication: TRICHOSPORON INFECTION
     Dosage: UNK (30 MILLION IU GMCSF FOR 3 DAYS)
  10. INSULIN [Concomitant]
     Active Substance: INSULIN NOS
     Indication: DIABETIC KETOACIDOSIS
     Dosage: UNK
     Route: 042

REACTIONS (1)
  - Drug resistance [Fatal]
